FAERS Safety Report 7326566-X (Version None)
Quarter: 2011Q1

REPORT INFORMATION
  Report Type: 
  Country: None (occurrence: None)
  Receive Date: 20110302
  Receipt Date: 20110222
  Transmission Date: 20110831
  Serious: Yes (Hospitalization, Other)
  Sender: FDA-Public Use
  Company Number: US-MERCK-0812USA04684

PATIENT
  Age: 47 Year
  Sex: Male
  Weight: 70 kg

DRUGS (2)
  1. FOSAMAX [Suspect]
     Route: 048
     Dates: start: 20060701, end: 20070101
  2. FOSAMAX [Suspect]
     Indication: OSTEOPOROSIS
     Route: 048
     Dates: start: 20021101, end: 20060701

REACTIONS (45)
  - PYREXIA [None]
  - ERECTILE DYSFUNCTION [None]
  - DYSAESTHESIA [None]
  - DIZZINESS POSTURAL [None]
  - NIGHT SWEATS [None]
  - AORTIC ANEURYSM [None]
  - RENAL TUBULAR NECROSIS [None]
  - LOBAR PNEUMONIA [None]
  - HYPERLIPIDAEMIA [None]
  - MYASTHENIA GRAVIS [None]
  - ARTHRALGIA [None]
  - BLOOD CREATINE INCREASED [None]
  - OSTEONECROSIS OF JAW [None]
  - URETERAL DISORDER [None]
  - POST PROCEDURAL HAEMORRHAGE [None]
  - ABSCESS [None]
  - BLOOD POTASSIUM INCREASED [None]
  - NASAL DISORDER [None]
  - COLON ADENOMA [None]
  - ACUTE MYOCARDIAL INFARCTION [None]
  - THROMBOCYTOPENIA [None]
  - AORTIC DISORDER [None]
  - AORTIC DISSECTION [None]
  - ADRENAL INSUFFICIENCY [None]
  - CORONARY ARTERY DISEASE [None]
  - RHINITIS ALLERGIC [None]
  - HEADACHE [None]
  - FATIGUE [None]
  - RENAL FAILURE ACUTE [None]
  - HAEMOTHORAX [None]
  - HIV TEST POSITIVE [None]
  - COLONIC POLYP [None]
  - DIPLOPIA [None]
  - URTICARIA CHRONIC [None]
  - PERIODONTAL DISEASE [None]
  - NASAL SEPTUM DEVIATION [None]
  - MENISCUS LESION [None]
  - RENAL FAILURE CHRONIC [None]
  - HAEMATOCHEZIA [None]
  - TOOTH DISORDER [None]
  - PAIN [None]
  - EXOSTOSIS [None]
  - ANAEMIA [None]
  - WEIGHT DECREASED [None]
  - NEPHROLITHIASIS [None]
